FAERS Safety Report 4320865-1 (Version None)
Quarter: 2004Q1

REPORT INFORMATION
  Report Type: 
  Country: None (occurrence: None)
  Receive Date: 20040318
  Receipt Date: 20040301
  Transmission Date: 20041129
  Serious: Yes (Hospitalization)
  Sender: FDA-Public Use
  Company Number: 7589

PATIENT
  Age: 65 Year
  Sex: Female

DRUGS (19)
  1. METHOTREXATE [Suspect]
     Dosage: 15 MG WEEKLY
     Route: 058
     Dates: start: 20031002
  2. ETANERCEPT [Suspect]
     Indication: RHEUMATOID ARTHRITIS
     Dosage: 25 MG 2/WK
     Route: 058
  3. PREDNISONE [Concomitant]
  4. CELECOXIB [Concomitant]
  5. ATORVASTATIN [Concomitant]
  6. ACETAMINOPHEN [Concomitant]
  7. FOLIC ACID [Concomitant]
  8. ISOSORBIDE DINITRATE [Concomitant]
  9. OMEPRAZOLE [Concomitant]
  10. TRAMADOL HCL [Concomitant]
  11. ASPIRIN [Concomitant]
  12. LOPERAMIDE HCL [Concomitant]
  13. FUROSEMIDE [Concomitant]
  14. METFORMIN HCL [Concomitant]
  15. PSYLLIUM HYDROPHILIC MUCILLOID [Concomitant]
  16. METOCLOPRAMIDE [Concomitant]
  17. ATENOLOL [Concomitant]
  18. LISINOPRIL [Concomitant]
  19. GLYCERYL TRINITRATE [Concomitant]

REACTIONS (8)
  - ABDOMINAL DISTENSION [None]
  - ABDOMINAL PAIN [None]
  - ANGINA PECTORIS [None]
  - BLOOD PRESSURE SYSTOLIC INCREASED [None]
  - EYE IRRITATION [None]
  - KERATOCONJUNCTIVITIS SICCA [None]
  - NORMOCHROMIC NORMOCYTIC ANAEMIA [None]
  - RASH [None]
